FAERS Safety Report 20291474 (Version 1)
Quarter: 2022Q1

REPORT INFORMATION
  Report Type: Spontaneous
  Country: QA (occurrence: QA)
  Receive Date: 20220104
  Receipt Date: 20220104
  Transmission Date: 20220424
  Serious: Yes (Hospitalization, Other)
  Sender: FDA-Public Use
  Company Number: QA-JNJFOC-20211253565

PATIENT
  Age: 63 Year
  Sex: Male

DRUGS (10)
  1. PREZCOBIX [Suspect]
     Active Substance: COBICISTAT\DARUNAVIR ETHANOLATE
     Indication: Infection in an immunocompromised host
     Route: 048
  2. PROGRAF [Interacting]
     Active Substance: TACROLIMUS
     Indication: Immunosuppression
     Route: 065
  3. AZITHROMYCIN [Suspect]
     Active Substance: AZITHROMYCIN
     Indication: Infection in an immunocompromised host
     Route: 065
  4. HYDROXYCHLOROQUINE [Suspect]
     Active Substance: HYDROXYCHLOROQUINE
     Indication: Infection in an immunocompromised host
     Route: 065
  5. OSELTAMIVIR [Suspect]
     Active Substance: OSELTAMIVIR
     Route: 065
  6. RIBAVIRIN [Suspect]
     Active Substance: RIBAVIRIN
     Indication: Infection in an immunocompromised host
     Route: 065
  7. TOCILIZUMAB [Suspect]
     Active Substance: TOCILIZUMAB
     Indication: Infection in an immunocompromised host
     Route: 065
  8. MYCOPHENOLATE MOFETIL [Interacting]
     Active Substance: MYCOPHENOLATE MOFETIL
     Indication: Immunosuppression
     Route: 065
  9. PREDNISOLONE [Interacting]
     Active Substance: PREDNISOLONE
     Indication: Immunosuppression
  10. PREDNISOLONE [Interacting]
     Active Substance: PREDNISOLONE
     Indication: Infection in an immunocompromised host

REACTIONS (5)
  - Acute kidney injury [Recovered/Resolved]
  - Drug interaction [Unknown]
  - Drug level increased [Unknown]
  - Product use in unapproved indication [Unknown]
  - Off label use [Unknown]
